FAERS Safety Report 5763968-7 (Version None)
Quarter: 2008Q2

REPORT INFORMATION
  Report Type: 
  Country: None (occurrence: None)
  Receive Date: 20080606
  Receipt Date: 20080606
  Transmission Date: 20081010
  Serious: No
  Sender: FDA-Public Use
  Company Number: None

PATIENT
  Sex: Male

DRUGS (1)
  1. SINGULAIR [Suspect]
     Indication: ASTHMA
     Dosage: 4 MG ONCE A DAY PO
     Route: 048
     Dates: start: 20060101, end: 20080101

REACTIONS (9)
  - ABDOMINAL PAIN UPPER [None]
  - ABNORMAL BEHAVIOUR [None]
  - ATTENTION DEFICIT/HYPERACTIVITY DISORDER [None]
  - CRYING [None]
  - EPISTAXIS [None]
  - HEADACHE [None]
  - MOOD SWINGS [None]
  - MUSCLE SPASMS [None]
  - RESTLESSNESS [None]
